FAERS Safety Report 16246774 (Version 2)
Quarter: 2019Q3

REPORT INFORMATION
  Report Type: Report from Study
  Country: None (occurrence: DE)
  Receive Date: 20190427
  Receipt Date: 20190801
  Transmission Date: 20191004
  Serious: Yes (Hospitalization)
  Sender: FDA-Public Use
  Company Number: DE-ABBVIE-19K-062-2760167-00

PATIENT
  Age: 59 Year
  Sex: Male

DRUGS (6)
  1. HUMIRA [Suspect]
     Active Substance: ADALIMUMAB
     Indication: RHEUMATOID ARTHRITIS
     Route: 058
     Dates: start: 201810, end: 20181224
  2. MTX [Concomitant]
     Active Substance: METHOTREXATE SODIUM
     Dosage: FORM STRENGTH 7.5 UNKNOWN
     Dates: start: 2015, end: 2017
  3. XELJANZ [Suspect]
     Active Substance: TOFACITINIB CITRATE
     Indication: PRODUCT USED FOR UNKNOWN INDICATION
     Route: 065
     Dates: start: 201806, end: 201809
  4. MTX [Concomitant]
     Active Substance: METHOTREXATE SODIUM
     Indication: PRODUCT USED FOR UNKNOWN INDICATION
     Dates: start: 200302, end: 200809
  5. MTX [Concomitant]
     Active Substance: METHOTREXATE SODIUM
     Dosage: STRENGTH 12.5 UNKNOWN
     Dates: start: 2017, end: 2018
  6. HUMIRA [Suspect]
     Active Substance: ADALIMUMAB
     Route: 058
     Dates: start: 20190306

REACTIONS (2)
  - Calcinosis [Not Recovered/Not Resolved]
  - Inflammatory pseudotumour [Not Recovered/Not Resolved]

NARRATIVE: CASE EVENT DATE: 20181211
